FAERS Safety Report 9893374 (Version 3)
Quarter: 2014Q3

REPORT INFORMATION
  Report Type: Spontaneous
  Country: IT (occurrence: IT)
  Receive Date: 20140213
  Receipt Date: 20140710
  Transmission Date: 20150326
  Serious: Yes (Other)
  Sender: FDA-Public Use
  Company Number: IT-ROCHE-1347969

PATIENT
  Age: 53 Year
  Sex: Male

DRUGS (3)
  1. VALIUM [Suspect]
     Active Substance: DIAZEPAM
     Indication: DRUG ABUSE
     Route: 030
     Dates: start: 20131229, end: 20131229
  2. CARBOLITHIUM [Suspect]
     Active Substance: LITHIUM CARBONATE
     Indication: DRUG ABUSE
     Dosage: TWO TABLET IN THE MORNING AND ONE TABLET IN THE NIGHT
     Route: 048
     Dates: start: 20131229, end: 20131229
  3. ZYPREXA [Suspect]
     Active Substance: OLANZAPINE
     Indication: DRUG ABUSE
     Dosage: ONE TABLET IN TH E NIGHT
     Route: 048
     Dates: start: 20131229, end: 20131229

REACTIONS (3)
  - Loss of consciousness [Recovered/Resolved]
  - Sopor [Recovered/Resolved]
  - Intentional overdose [Unknown]

NARRATIVE: CASE EVENT DATE: 20131229
